FAERS Safety Report 20655056 (Version 1)
Quarter: 2022Q1

REPORT INFORMATION
  Report Type: Spontaneous
  Country: US (occurrence: None)
  Receive Date: 20220330
  Receipt Date: 20220330
  Transmission Date: 20220423
  Serious: Yes (Hospitalization)
  Sender: FDA-Public Use
  Company Number: None

PATIENT
  Sex: Female

DRUGS (1)
  1. CAPECITABINE [Suspect]
     Active Substance: CAPECITABINE
     Indication: Small intestine carcinoma
     Dosage: OTHER QUANTITY : 2000MG AM 1500MG P;?OTHER FREQUENCY : 14 D ON 4 D OFF;?
     Route: 048
     Dates: start: 202202, end: 202203

REACTIONS (1)
  - Terminal ileitis [None]
